FAERS Safety Report 5838634-X (Version None)
Quarter: 2008Q3

REPORT INFORMATION
  Report Type: 
  Country: None (occurrence: None)
  Receive Date: 20080808
  Receipt Date: 20080701
  Transmission Date: 20090109
  Serious: No
  Sender: FDA-Public Use
  Company Number: A0735585A

PATIENT
  Age: 84 Year
  Sex: Female

DRUGS (14)
  1. ALTABAX [Suspect]
     Dosage: 1APP SINGLE DOSE
     Route: 061
     Dates: start: 20080623, end: 20080623
  2. DIPHENOXYLATE HCL + ATROPINE SULFATE [Concomitant]
  3. METRONIDAZOLE HCL [Concomitant]
  4. SERTRALINE HCL [Concomitant]
  5. TRANDOLAPRIL [Concomitant]
  6. HYDROCHLOROTHIAZIDE [Concomitant]
  7. PRAVASTATIN [Concomitant]
  8. NORTRIPTYLINE HCL [Concomitant]
  9. LEVOXYL [Concomitant]
  10. BUSPIRONE HCL [Concomitant]
  11. GABAPENTIN [Concomitant]
  12. ASPIRIN [Concomitant]
  13. VITAMIN TAB [Concomitant]
  14. MINERAL TAB [Concomitant]

REACTIONS (4)
  - APPLICATION SITE ERYTHEMA [None]
  - APPLICATION SITE PAIN [None]
  - ERYTHEMA [None]
  - PAIN IN EXTREMITY [None]
